FAERS Safety Report 4797634-1 (Version None)
Quarter: 2005Q4

REPORT INFORMATION
  Report Type: 
  Country: None (occurrence: None)
  Receive Date: 20051013
  Receipt Date: 20050909
  Transmission Date: 20060501
  Serious: Yes (Hospitalization)
  Sender: FDA-Public Use
  Company Number: US-MERCK-0509USA01473

PATIENT
  Age: 62 Year
  Sex: Male
  Weight: 105 kg

DRUGS (8)
  1. VIOXX [Suspect]
     Indication: ARTHRITIS
     Route: 048
     Dates: start: 19990501, end: 20000101
  2. VIOXX [Suspect]
     Route: 048
     Dates: start: 20000101, end: 20040101
  3. ULTRACET [Concomitant]
     Route: 065
  4. ATENOLOL [Concomitant]
     Route: 065
  5. LIPITOR [Concomitant]
     Route: 065
  6. ZOLOFT [Concomitant]
     Route: 065
  7. CENTRUM [Concomitant]
     Route: 065
  8. FLOMAX [Concomitant]
     Route: 065

REACTIONS (1)
  - MYOCARDIAL INFARCTION [None]
